FAERS Safety Report 5054752-0 (Version None)
Quarter: 2006Q3

REPORT INFORMATION
  Report Type: 
  Country: None (occurrence: None)
  Receive Date: 20060719
  Receipt Date: 20060621
  Transmission Date: 20061208
  Serious: Yes (Death, Hospitalization, Other)
  Sender: FDA-Public Use
  Company Number: PHBS2006JP09311

PATIENT
  Age: 51 Year
  Sex: Male

DRUGS (2)
  1. CYCLOSPORINE [Suspect]
     Indication: APLASIA PURE RED CELL
     Dosage: 200 MG/D
     Route: 048
     Dates: start: 20041001, end: 20041201
  2. PREDNISOLONE [Concomitant]
     Indication: APLASIA PURE RED CELL
     Dosage: 30 MG/D
     Route: 048
     Dates: start: 20040101

REACTIONS (12)
  - DIABETES MELLITUS INADEQUATE CONTROL [None]
  - DRUG INEFFECTIVE [None]
  - EPSTEIN-BARR VIRUS INFECTION [None]
  - HISTIOCYTOSIS HAEMATOPHAGIC [None]
  - INTERLEUKIN LEVEL INCREASED [None]
  - LARGE GRANULAR LYMPHOCYTOSIS [None]
  - LYMPHOCYTE MORPHOLOGY ABNORMAL [None]
  - PANCYTOPENIA [None]
  - RENAL FAILURE ACUTE [None]
  - SEPSIS [None]
  - SERUM FERRITIN INCREASED [None]
  - T-CELL CHRONIC LYMPHOCYTIC LEUKAEMIA [None]
